FAERS Safety Report 8969326 (Version 2)
Quarter: 2022Q1

REPORT INFORMATION
  Report Type: Spontaneous
  Country: IT (occurrence: IT)
  Receive Date: 20121217
  Receipt Date: 20220217
  Transmission Date: 20220423
  Serious: Yes (Other)
  Sender: FDA-Public Use
  Company Number: PHHY2012IT114700

PATIENT
  Age: 21 Year
  Sex: Female

DRUGS (4)
  1. ARIPIPRAZOLE [Interacting]
     Active Substance: ARIPIPRAZOLE
     Indication: Tourette^s disorder
     Dosage: 7.5 MG, QD
     Route: 065
  2. ARIPIPRAZOLE [Interacting]
     Active Substance: ARIPIPRAZOLE
     Dosage: 2.5 MG, QD
     Route: 065
  3. FLUOXETINE [Interacting]
     Active Substance: FLUOXETINE HYDROCHLORIDE
     Indication: Obsessive-compulsive disorder
     Dosage: UNK, INCREASING DOSAGE UP TO 20 MG DAILY
     Route: 065
  4. FLUOXETINE [Interacting]
     Active Substance: FLUOXETINE HYDROCHLORIDE
     Indication: Self-destructive behaviour

REACTIONS (8)
  - Oculogyric crisis [Recovered/Resolved]
  - Posture abnormal [Recovered/Resolved]
  - Slow response to stimuli [Recovered/Resolved]
  - Eye movement disorder [Recovered/Resolved]
  - Confusional state [Recovered/Resolved]
  - Somnolence [Recovered/Resolved]
  - Decreased activity [Recovered/Resolved]
  - Drug interaction [Unknown]
